FAERS Safety Report 6661589-5 (Version None)
Quarter: 2010Q1

REPORT INFORMATION
  Report Type: 
  Country: None (occurrence: None)
  Receive Date: 20100331
  Receipt Date: 20090323
  Transmission Date: 20100710
  Serious: Yes (Other)
  Sender: FDA-Public Use
  Company Number: US-BRISTOL-MYERS SQUIBB COMPANY-14481998

PATIENT
  Age: 79 Year
  Sex: Male

DRUGS (7)
  1. ERBITUX [Suspect]
     Indication: COLORECTAL CANCER METASTATIC
     Dosage: DURATION: 30-60^
     Route: 042
     Dates: start: 20081111
  2. ALOXI [Concomitant]
  3. DECADRON [Concomitant]
  4. MAGNESIUM SULFATE [Concomitant]
  5. CAMPTOSAR [Concomitant]
  6. LEUCOVORIN CALCIUM [Concomitant]
  7. FLUOROURACIL [Concomitant]

REACTIONS (4)
  - CHEST DISCOMFORT [None]
  - COUGH [None]
  - DYSPNOEA [None]
  - ERYTHEMA [None]
